FAERS Safety Report 9945694 (Version 1)
Quarter: 2014Q1

REPORT INFORMATION
  Report Type: Report from Study
  Country: US (occurrence: US)
  Receive Date: 20140303
  Receipt Date: 20140303
  Transmission Date: 20141002
  Serious: No
  Sender: FDA-Public Use
  Company Number: US-ABBVIE-13P-163-1048386-00

PATIENT
  Age: 41 Year
  Sex: Female

DRUGS (11)
  1. HUMIRA [Suspect]
     Indication: CROHN^S DISEASE
     Dates: start: 20121110
  2. PROZAC [Concomitant]
     Indication: PRODUCT USED FOR UNKNOWN INDICATION
     Dosage: EVERY AM
  3. ZINC [Concomitant]
     Indication: IMMUNE SYSTEM DISORDER
     Dosage: EVERY AM
  4. PROBIOTICS [Concomitant]
     Indication: PRODUCT USED FOR UNKNOWN INDICATION
  5. ZYRTEC HCL [Concomitant]
     Indication: HYPERSENSITIVITY
     Dosage: 10MG EVERY DAY
  6. ZYRTEC HCL [Concomitant]
     Indication: URTICARIA CHRONIC
  7. LIDODERM [Concomitant]
     Indication: BACK DISORDER
     Dosage: ON 12 HOURS, OFF 12 HOURS
  8. FLEXERIL [Concomitant]
     Indication: BACK DISORDER
  9. LORTAB [Concomitant]
     Indication: BACK DISORDER
     Dosage: 7.5/200, 2-3 TIMES PER DAY
  10. HYDROXYZINE HCL [Concomitant]
     Indication: PRODUCT USED FOR UNKNOWN INDICATION
     Dosage: 2 TABS PER DAY
  11. IMODIUM [Concomitant]
     Indication: PRODUCT USED FOR UNKNOWN INDICATION

REACTIONS (8)
  - Intervertebral disc compression [Recovering/Resolving]
  - Back pain [Recovering/Resolving]
  - Influenza [Recovering/Resolving]
  - Injection site pain [Recovering/Resolving]
  - Injection site bruising [Recovering/Resolving]
  - Injection site haemorrhage [Recovering/Resolving]
  - Malaise [Recovering/Resolving]
  - Influenza like illness [Recovering/Resolving]
